FAERS Safety Report 9677472 (Version 2)
Quarter: 2014Q1

REPORT INFORMATION
  Report Type: Report from Study
  Country: US (occurrence: US)
  Receive Date: 20131108
  Receipt Date: 20140115
  Transmission Date: 20141002
  Serious: Yes (Other)
  Sender: FDA-Public Use
  Company Number: PHEH2013US023274

PATIENT
  Sex: Female

DRUGS (1)
  1. ZOMETA [Suspect]
     Indication: NEOPLASM MALIGNANT
     Dosage: 4 MG, EVERY OTHER DAY
     Route: 042
     Dates: start: 20130723

REACTIONS (5)
  - Vocal cord paralysis [Unknown]
  - Neuropathy peripheral [Not Recovered/Not Resolved]
  - Nerve injury [Unknown]
  - Bone pain [Unknown]
  - Arthralgia [Unknown]
